FAERS Safety Report 5183818-X (Version None)
Quarter: 2006Q4

REPORT INFORMATION
  Report Type: 
  Country: None (occurrence: None)
  Receive Date: 20061220
  Receipt Date: 20061031
  Transmission Date: 20070319
  Serious: Yes (Hospitalization, Disabling)
  Sender: FDA-Public Use
  Company Number: US-GLAXOSMITHKLINE-A0625593A

PATIENT
  Age: 42 Year
  Sex: Female
  Weight: 57.7 kg

DRUGS (10)
  1. LAMICTAL [Suspect]
     Indication: EPILEPSY
     Dosage: 300MG TWICE PER DAY
     Route: 048
     Dates: start: 20051201, end: 20061010
  2. ZONEGRAN [Concomitant]
  3. LANOXIN [Concomitant]
     Dosage: .25MG PER DAY
  4. COUMADIN [Concomitant]
  5. COZAAR [Concomitant]
     Dosage: 25MG PER DAY
  6. IMDUR [Concomitant]
     Dosage: 30MG PER DAY
  7. THYROID TAB [Concomitant]
     Dosage: 60MG PER DAY
  8. ALDACTONE [Concomitant]
     Dosage: 25MG PER DAY
  9. ZOLOFT [Concomitant]
     Dosage: 150MG PER DAY
  10. PRAVACHOL [Concomitant]
     Dosage: 20MG PER DAY

REACTIONS (11)
  - BALANCE DISORDER [None]
  - BLINDNESS [None]
  - DEPRESSED LEVEL OF CONSCIOUSNESS [None]
  - DIPLOPIA [None]
  - DYSARTHRIA [None]
  - HYPOTONIA [None]
  - MOVEMENT DISORDER [None]
  - MUSCULAR WEAKNESS [None]
  - PARALYSIS [None]
  - SPEECH DISORDER [None]
  - VISION BLURRED [None]
